FAERS Safety Report 24037341 (Version 2)
Quarter: 2024Q3

REPORT INFORMATION
  Report Type: Report from Study
  Country: US (occurrence: US)
  Receive Date: 20240702
  Receipt Date: 20240918
  Transmission Date: 20241017
  Serious: Yes (Other)
  Sender: ABBVIE
  Company Number: US-ABBVIE-5819597

PATIENT
  Age: 51 Year
  Sex: Female
  Weight: 158 kg

DRUGS (38)
  1. SYNTHROID [Suspect]
     Active Substance: LEVOTHYROXINE SODIUM
     Indication: Product used for unknown indication
     Dosage: FORM STRENGTH: 137 MICROGRAM
     Route: 048
  2. SYNTHROID [Suspect]
     Active Substance: LEVOTHYROXINE SODIUM
     Indication: Product used for unknown indication
     Dosage: TAKE ONE TABLET BY MOUTH EVERY MORNING ON AN EMPTY STOMACH
     Route: 048
  3. TOVIAZ [Concomitant]
     Active Substance: FESOTERODINE FUMARATE
     Indication: Product used for unknown indication
     Dosage: TAKE 1 TABLET EVERY DAY BY ORAL ROUTE FOR 30 DAYS.
     Route: 048
  4. TRAMADOL [Concomitant]
     Active Substance: TRAMADOL\TRAMADOL HYDROCHLORIDE
     Indication: Product used for unknown indication
     Dosage: TAKE ONE (1) TABLET(S) BY MOUTH EVERY SIX HOURS
     Route: 048
  5. TROSPIUM [Concomitant]
     Active Substance: TROSPIUM
     Indication: Product used for unknown indication
     Dosage: ER 60 MG CAPSULE,EXTENDED RELEASE 24 HR?TAKE ONE CAPSULE BY MOUTH EVERY DAY
  6. VICKS SINEX [Concomitant]
     Active Substance: ACETAMINOPHEN\PHENYLEPHRINE HYDROCHLORIDE
     Indication: Product used for unknown indication
     Dosage: 12-HOUR 0.05 % NASAL SPRAY?SPRAY 2 SPRAYS TWICE A DAY BY INTRANASAL ROUTE FOR 3 DAYS.
  7. ALLOPURINOL [Concomitant]
     Active Substance: ALLOPURINOL
     Indication: Product used for unknown indication
     Dosage: TAKE ONE (1) TABLET(S) BY MOUTH ONCE A DAY
     Route: 048
  8. ALBUTEROL SULFATE [Concomitant]
     Active Substance: ALBUTEROL SULFATE
     Indication: Product used for unknown indication
     Dosage: 2.5 MG/3 ML (0.083 %) SOLUTION FOR NEBULIZATION?INHALE 3 ML 3 TIMES A DAY BY NEBULIZATION ROUTE A...
  9. AMITRIPTYLINE [Concomitant]
     Active Substance: AMITRIPTYLINE
     Indication: Product used for unknown indication
     Dosage: TAKE ONE (1) TABLET(S) BY MOUTH THREE TIMES A DAY.
     Route: 048
  10. ASPIRIN [Concomitant]
     Active Substance: ASPIRIN
     Indication: Product used for unknown indication
     Dosage: 81 MG CHEWABLE TABLET?CHEW 1 TABLET EVERY DAY BY ORAL ROUTE
     Route: 048
  11. BUSPIRONE [Concomitant]
     Active Substance: BUSPIRONE HYDROCHLORIDE
     Indication: Product used for unknown indication
     Dosage: TAKE ONE (1) TABLET(S) BY MOUTH TWICE A DAY.
     Route: 048
  12. CEPHALEXIN [Concomitant]
     Active Substance: CEPHALEXIN
     Indication: Product used for unknown indication
     Dosage: TAKE TWO (2) TABLET(S) BY MOUTH TWICE A DAY FOR 5 DAYS.
     Route: 048
  13. DICYCLOMINE [Concomitant]
     Active Substance: DICYCLOMINE HYDROCHLORIDE
     Indication: Product used for unknown indication
     Dosage: TAKE ONE (1) CAPSULE(S) BY MOUTH THREE TIMES A DAY AS NEEDED.
     Route: 048
  14. ESTRADIOL [Concomitant]
     Active Substance: ESTRADIOL
     Indication: Product used for unknown indication
     Dosage: 0.01% (0.1 MG/GRAM) VAGINAL CREAM?INSERT 1 APPLICATORFUL VAGINALLY (1 GRAM) EVERY NIGHT AT BEDTIM...
  15. FLECAINIDE [Concomitant]
     Active Substance: FLECAINIDE
     Indication: Product used for unknown indication
     Dosage: TAKE ONE (1) TABLET EVERY 12 HOURS BY MOUTH.
     Route: 048
  16. FLUCONAZOLE [Concomitant]
     Active Substance: FLUCONAZOLE
     Indication: Product used for unknown indication
     Dosage: TAKE ONE (1) TABLET(S) BY MOUTH DAILY.
     Route: 048
  17. FLUTICASONE PROPIONATE [Concomitant]
     Active Substance: FLUTICASONE PROPIONATE
     Indication: Product used for unknown indication
     Dosage: 50 MCG/ACTUATION NASAL SPRAY,SUSPENSION?INSTILL ONE (1) SPRAY INTO EACH NOSTRIL TWICE DAILY FOR 5...
  18. GABAPENTIN [Concomitant]
     Active Substance: GABAPENTIN
     Indication: Product used for unknown indication
     Dosage: TAKE ONE CAPSULE BY MOUTH THREE TIMES DAILY
     Route: 048
  19. GAS-X [Concomitant]
     Active Substance: DIMETHICONE
     Indication: Product used for unknown indication
     Dosage: 1 A DAY AS NEEDED
  20. HYDROCORTISONE ACETATE [Concomitant]
     Active Substance: HYDROCORTISONE ACETATE
     Indication: Product used for unknown indication
     Dosage: 25 MG RECTAL SUPPOSITORY?UNWRAP AND INSERT ONE (1) SUPPOSITORY(IES) RECTALLY TWICE A DAY FOR 14 D...
  21. HYDROXYZINE PAMOATE [Concomitant]
     Active Substance: HYDROXYZINE PAMOATE
     Indication: Product used for unknown indication
     Dosage: TAKE ONE (1) CAPSULE(S) BY MOUTH FOUR TIMES A DAY AS NEEDED
     Route: 048
  22. IBUPROFEN [Concomitant]
     Active Substance: IBUPROFEN
     Indication: Product used for unknown indication
     Dosage: TAKE ONE (1) TABLET(S) BY MOUTH THREE TIMES A DAY AS NEEDED.
     Route: 048
  23. IPRATROPIUM [Concomitant]
     Active Substance: IPRATROPIUM
     Indication: Product used for unknown indication
     Dosage: 0.5 MG-ALBUTEROL 3 MG (2.5 MG BASE)/3 ML NEBULIZATION SOLN?INHALE 3 ML BY NEBULIZATION ROUTE.
  24. JANUMET [Concomitant]
     Active Substance: METFORMIN HYDROCHLORIDE\SITAGLIPTIN PHOSPHATE
     Indication: Product used for unknown indication
     Dosage: 50 MG-1,000 MG TABLET?TAKE 2 TABLETS EVERY DAY BY ORAL ROUTE FOR 90 DAYS.
  25. LINZESS [Concomitant]
     Active Substance: LINACLOTIDE
     Indication: Product used for unknown indication
     Dosage: TAKE ONE (1) CAPSULE BY MOUTH EVERY DAY IN THE MORNING.
     Route: 048
  26. LISINOPRIL [Concomitant]
     Active Substance: LISINOPRIL
     Indication: Product used for unknown indication
     Dosage: 20 MG-HYDROCHLOROTHIAZIDE 12.5 MG TABLET?TAKE ONE TABLET BY MOUTH EVERY DAY
  27. MAGNESIUM OXIDE [Concomitant]
     Active Substance: MAGNESIUM OXIDE
     Indication: Product used for unknown indication
     Dosage: 400 MG (241.3 MG MAGNESIUM) TABLET?TAKE ONE (1) TABLET EVERY DAY BY MOUTH AT BEDTIME.
  28. MELOXICAM [Concomitant]
     Active Substance: MELOXICAM
     Indication: Product used for unknown indication
     Dosage: TAKE ONE (1) TABLET(S) BY MOUTH ONCE A DAY.
     Route: 048
  29. METHOCARBAMOL [Concomitant]
     Active Substance: METHOCARBAMOL
     Indication: Muscle spasms
     Dosage: TAKE ONE (1) TO TWO (2) TABLET(S) BY MOUTH THREE TIMES A DAY AS NEEDED FOR PAIN/SPASM.
     Route: 048
  30. MUCINEX DM [Concomitant]
     Active Substance: DEXTROMETHORPHAN HYDROBROMIDE\GUAIFENESIN
     Indication: Product used for unknown indication
     Dosage: 60 MG-1,200 MG TABLET,EXTENDED RELEASE 12 HR?TAKE 1 TABLET TWICE A DAY BY ORAL ROUTE.
  31. OZEMPIC [Concomitant]
     Active Substance: SEMAGLUTIDE
     Indication: Product used for unknown indication
     Dosage: 0.25 MG OR 0.5 MG (2 MG/1.5 ML) SUBCUTANEOUS PEN INJECTOR?INJECT 0.25 MG EVERY WEEK BY SUBCUTANEO...
  32. PANTOPRAZOLE [Concomitant]
     Active Substance: PANTOPRAZOLE
     Indication: Product used for unknown indication
     Dosage: 40 MG TABLET,DELAYED RELEASE?TAKE ONE TABLET BY MOUTH EVERY DAY
  33. POLYETHYLENE GLYCOL 3350 [Concomitant]
     Active Substance: POLYETHYLENE GLYCOL 3350
     Indication: Product used for unknown indication
     Dosage: 17 GRAM/DOSE ORAL POWDER?TAKE 17 GRAMS EVERY DAY BY ORAL ROUTE.
  34. PRAVASTATIN [Concomitant]
     Active Substance: PRAVASTATIN
     Indication: Product used for unknown indication
     Dosage: TAKE ONE TABLET BY MOUTH EVERY DAY
     Route: 048
  35. PRAVASTATIN [Concomitant]
     Active Substance: PRAVASTATIN
     Indication: Product used for unknown indication
     Dosage: TAKE ONE (1) TABLET(S) BY MOUTH ONCE A DAY.
     Route: 048
  36. SERTRALINE [Concomitant]
     Active Substance: SERTRALINE HYDROCHLORIDE
     Indication: Product used for unknown indication
     Dosage: TAKE 0.5 TABLETS EVERY DAY BY ORAL ROUTE.
     Route: 048
  37. SULFAMETHOXAZOLE [Concomitant]
     Active Substance: SULFAMETHOXAZOLE
     Indication: Product used for unknown indication
     Dosage: 400 MG-TRIMETHOPRIM 80 MG TABLET?TAKE 0.5 TABLETS EVERY DAY BY ORAL ROUTE FOR 30 DAYS
  38. TIZANIDINE [Concomitant]
     Active Substance: TIZANIDINE
     Indication: Product used for unknown indication
     Dosage: TAKE ONE (1) TO TWO (2) TA^ BLET(S) BY MOUTH EVERY 6 HOURS AS NEEDED.
     Route: 048

REACTIONS (2)
  - Colon cancer [Recovering/Resolving]
  - Adenocarcinoma of colon [Unknown]

NARRATIVE: CASE EVENT DATE: 20230408
